FAERS Safety Report 8486155-0 (Version None)
Quarter: 2012Q3

REPORT INFORMATION
  Report Type: 
  Country: None (occurrence: None)
  Receive Date: 20120703
  Receipt Date: 20120619
  Transmission Date: 20120928
  Serious: Yes (Other)
  Sender: FDA-Public Use
  Company Number: FR-VALEANT-2012VX002199

PATIENT
  Sex: Female

DRUGS (7)
  1. PK-MERZ 100 [Concomitant]
     Indication: PARKINSON'S DISEASE
     Route: 065
  2. LACTULOSE [Concomitant]
     Route: 065
     Dates: start: 20120611
  3. MADOPAR [Suspect]
     Indication: PARKINSON'S DISEASE
     Route: 065
  4. ISICOM 100 [Suspect]
     Indication: PARKINSON'S DISEASE
     Route: 065
  5. TASMAR [Suspect]
     Indication: PARKINSON'S DISEASE
     Route: 065
  6. NEUPRO PFLASTER [Suspect]
     Indication: PARKINSON'S DISEASE
     Route: 065
  7. REQUIP [Concomitant]
     Indication: PARKINSON'S DISEASE
     Route: 065

REACTIONS (2)
  - KLEPTOMANIA [None]
  - PATHOLOGICAL GAMBLING [None]
